FAERS Safety Report 8933352 (Version 5)
Quarter: 2013Q3

REPORT INFORMATION
  Report Type: Spontaneous
  Country: US (occurrence: US)
  Receive Date: 20121129
  Receipt Date: 20130821
  Transmission Date: 20140515
  Serious: Yes (Hospitalization, Other)
  Sender: FDA-Public Use
  Company Number: US-009507513-1211USA008698

PATIENT
  Age: 58 Year
  Sex: Female

DRUGS (5)
  1. PEG-INTRON [Suspect]
     Indication: HEPATITIS C
     Dosage: UNK
     Route: 058
     Dates: start: 20121101, end: 201212
  2. PEG-INTRON [Suspect]
     Dosage: UNK
     Route: 058
     Dates: start: 20121227
  3. RIBAVIRIN [Suspect]
     Indication: HEPATITIS C
     Dosage: UNK
     Route: 048
     Dates: start: 20121101, end: 201212
  4. RIBAVIRIN [Suspect]
     Dosage: UNK
     Route: 048
     Dates: start: 20121227
  5. VICTRELIS [Suspect]
     Indication: HEPATITIS C
     Dosage: UNK
     Route: 048
     Dates: start: 20121130, end: 20121213

REACTIONS (26)
  - Abdominal pain [Unknown]
  - Functional gastrointestinal disorder [Unknown]
  - Rash [Unknown]
  - Pruritus [Unknown]
  - Dyspepsia [Unknown]
  - Gastrointestinal disorder [Unknown]
  - Dysgeusia [Unknown]
  - Parosmia [Unknown]
  - Malaise [Unknown]
  - Abdominal pain [Unknown]
  - Decreased appetite [Unknown]
  - Fatigue [Unknown]
  - Nausea [Unknown]
  - Decreased appetite [Unknown]
  - White blood cell count decreased [Unknown]
  - Decreased appetite [Unknown]
  - Vomiting [Unknown]
  - Burn oesophageal [Unknown]
  - Chills [Unknown]
  - Pyrexia [Unknown]
  - Weight decreased [Unknown]
  - Fatigue [Unknown]
  - Dysgeusia [Unknown]
  - Asthenia [Unknown]
  - Nausea [Unknown]
  - Muscle spasms [Unknown]
